FAERS Safety Report 4767542-0 (Version None)
Quarter: 2005Q3

REPORT INFORMATION
  Report Type: 
  Country: None (occurrence: None)
  Receive Date: 20050913
  Receipt Date: 20050714
  Transmission Date: 20060218
  Serious: Yes (Life-Threatening)
  Sender: FDA-Public Use
  Company Number: 2005AP03982

PATIENT
  Age: 23087 Day
  Sex: Male
  Weight: 56 kg

DRUGS (18)
  1. OMEPRAZOLE [Suspect]
     Indication: NEPHROTIC SYNDROME
     Route: 048
     Dates: start: 20050705, end: 20050713
  2. OMEPRAZOLE [Suspect]
     Indication: RENAL IMPAIRMENT
     Route: 048
     Dates: start: 20050705, end: 20050713
  3. OMEPRAZOLE [Suspect]
     Indication: OESOPHAGEAL ULCER
     Route: 048
     Dates: start: 20050705, end: 20050713
  4. OMEPRAZOLE [Suspect]
     Indication: NEPHROTIC SYNDROME
     Route: 042
     Dates: start: 20050628, end: 20050704
  5. OMEPRAZOLE [Suspect]
     Indication: RENAL IMPAIRMENT
     Route: 042
     Dates: start: 20050628, end: 20050704
  6. OMEPRAZOLE [Suspect]
     Indication: OESOPHAGEAL ULCER
     Route: 042
     Dates: start: 20050628, end: 20050704
  7. ADALAT [Suspect]
     Route: 048
     Dates: start: 20050625, end: 20050713
  8. DIOVAN [Suspect]
     Route: 048
     Dates: start: 20050705, end: 20050713
  9. PANSPORIN T [Suspect]
     Route: 048
     Dates: start: 20050623, end: 20050627
  10. PANSPORIN [Suspect]
     Route: 041
     Dates: start: 20050628, end: 20050630
  11. ALLOID G [Concomitant]
     Route: 048
     Dates: start: 20050628
  12. EPOGIN [Concomitant]
     Route: 058
     Dates: start: 20050628
  13. CRAVIT [Concomitant]
     Route: 048
     Dates: start: 20050712, end: 20050713
  14. ALLOPURINOL [Concomitant]
     Route: 048
     Dates: end: 20050713
  15. ZANTAC [Concomitant]
     Route: 048
     Dates: end: 20050713
  16. KREMEZIN [Concomitant]
     Route: 048
     Dates: end: 20050713
  17. CONIEL [Concomitant]
     Route: 048
  18. LASIX [Concomitant]
     Route: 048

REACTIONS (3)
  - GRANULOCYTOPENIA [None]
  - INTERSTITIAL LUNG DISEASE [None]
  - WHITE BLOOD CELL COUNT DECREASED [None]
